FAERS Safety Report 7114882-6 (Version None)
Quarter: 2010Q4

REPORT INFORMATION
  Report Type: 
  Country: None (occurrence: None)
  Receive Date: 20101122
  Receipt Date: 20101111
  Transmission Date: 20110411
  Serious: No
  Sender: FDA-Public Use
  Company Number: US-BIOGENIDEC-2010BI040114

PATIENT
  Sex: Female

DRUGS (1)
  1. TYSABRI [Suspect]
     Indication: MULTIPLE SCLEROSIS
     Route: 042
     Dates: start: 20090515

REACTIONS (5)
  - BACK PAIN [None]
  - CHEST DISCOMFORT [None]
  - DIZZINESS [None]
  - MUSCLE SPASMS [None]
  - OROPHARYNGEAL DISCOMFORT [None]
